FAERS Safety Report 4401386-4 (Version None)
Quarter: 2004Q3

REPORT INFORMATION
  Report Type: 
  Country: None (occurrence: None)
  Receive Date: 20040907
  Receipt Date: 20040408
  Transmission Date: 20050211
  Serious: No
  Sender: FDA-Public Use
  Company Number: US-BRISTOL-MYERS SQUIBB COMPANY-12555595

PATIENT
  Age: 84 Year
  Sex: Male
  Weight: 61 kg

DRUGS (5)
  1. COUMADIN [Suspect]
     Indication: ATRIAL FIBRILLATION
     Dosage: DOSAGE: 5MG AND 7.5MG ALTERNATING DAILY
     Route: 048
  2. CARDIZEM CD [Concomitant]
  3. FLOMAX [Concomitant]
  4. AMBIEN [Concomitant]
  5. FOLEX [Concomitant]

REACTIONS (1)
  - FEELING HOT [None]
